FAERS Safety Report 20064358 (Version 1)
Quarter: 2021Q4

REPORT INFORMATION
  Report Type: Spontaneous
  Country: US (occurrence: US)
  Receive Date: 20211112
  Receipt Date: 20211112
  Transmission Date: 20220303
  Serious: No
  Sender: FDA-Public Use
  Company Number: US-Flexion Therapeutics, Inc.-2020FLS000109

PATIENT
  Sex: Female

DRUGS (6)
  1. ZILRETTA [Suspect]
     Active Substance: TRIAMCINOLONE ACETONIDE
     Indication: Product used for unknown indication
     Dosage: RIGHT KNEE
     Route: 014
     Dates: start: 20201030, end: 20201030
  2. ZILRETTA [Suspect]
     Active Substance: TRIAMCINOLONE ACETONIDE
     Dosage: LEFT KNEE
     Route: 014
     Dates: start: 20201016, end: 20201016
  3. SYNTHROID [Concomitant]
     Active Substance: LEVOTHYROXINE SODIUM
     Indication: Product used for unknown indication
  4. HYDROCHLOROTHIAZIDE [Concomitant]
     Active Substance: HYDROCHLOROTHIAZIDE
     Indication: Product used for unknown indication
  5. ROSUVASTATIN [Concomitant]
     Active Substance: ROSUVASTATIN
     Indication: Product used for unknown indication
  6. TRAMADOL [Concomitant]
     Active Substance: TRAMADOL
     Indication: Product used for unknown indication

REACTIONS (6)
  - Migraine [Not Recovered/Not Resolved]
  - Sinus pain [Not Recovered/Not Resolved]
  - Urticaria [Not Recovered/Not Resolved]
  - Paraesthesia [Not Recovered/Not Resolved]
  - Flushing [Not Recovered/Not Resolved]
  - Ocular discomfort [Not Recovered/Not Resolved]

NARRATIVE: CASE EVENT DATE: 20201019
